FAERS Safety Report 15676568 (Version 1)
Quarter: 2018Q4

REPORT INFORMATION
  Report Type: Spontaneous
  Country: ES (occurrence: ES)
  Receive Date: 20181130
  Receipt Date: 20181130
  Transmission Date: 20190205
  Serious: Yes (Life-Threatening, Hospitalization, Other)
  Sender: FDA-Public Use
  Company Number: ES-JAZZ-2018-ES-017128

PATIENT
  Age: 7 Year
  Sex: Female
  Weight: 36.28 kg

DRUGS (25)
  1. AMBISOME [Concomitant]
     Active Substance: AMPHOTERICIN B
     Dosage: 35 MG/24 HOUR
     Route: 042
     Dates: start: 20180205, end: 20180222
  2. CEFTAZIDIME. [Concomitant]
     Active Substance: CEFTAZIDIME
     Indication: PRODUCT USED FOR UNKNOWN INDICATION
     Dosage: 1800 MG/8 HOUR
     Route: 042
     Dates: start: 20171219, end: 20171226
  3. VINCRISTINE SULFATE. [Suspect]
     Active Substance: VINCRISTINE SULFATE
     Indication: ACUTE LYMPHOCYTIC LEUKAEMIA
     Dosage: 1.7 MG/DAY
     Route: 042
     Dates: start: 20171222, end: 20171222
  4. DEXAMETHASONE. [Interacting]
     Active Substance: DEXAMETHASONE
     Indication: ACUTE LYMPHOCYTIC LEUKAEMIA
     Dosage: 11 MG/12HOUR
     Route: 042
     Dates: start: 20171220, end: 20171225
  5. DEXAMETHASONE. [Interacting]
     Active Substance: DEXAMETHASONE
     Dosage: 11 MG/12HOUR
     Dates: start: 20180129, end: 20180203
  6. FOSCARNET SODIUM. [Concomitant]
     Active Substance: FOSCARNET SODIUM
     Indication: PRODUCT USED FOR UNKNOWN INDICATION
     Dosage: 2200 MG/8 HOURS
     Route: 042
     Dates: start: 20171212, end: 20171213
  7. SEPTRIN [Concomitant]
     Active Substance: SULFAMETHOXAZOLE\TRIMETHOPRIM
     Dosage: 1 DF/12 HOUR
     Route: 048
     Dates: start: 20180205, end: 20180222
  8. AMBISOME [Concomitant]
     Active Substance: AMPHOTERICIN B
     Indication: PRODUCT USED FOR UNKNOWN INDICATION
     Dosage: 110 MG/24 HOUR
     Route: 042
     Dates: start: 20171211, end: 20180129
  9. MEROPENEM. [Concomitant]
     Active Substance: MEROPENEM
     Dosage: 1400 MG/8 HOUR
     Route: 042
     Dates: start: 20180205, end: 20180207
  10. ERWINASE [Interacting]
     Active Substance: ASPARAGINASE ERWINIA CHRYSANTHEMI
     Dosage: 22.4 IU/KG/1 DAYS
     Route: 030
     Dates: start: 20180203, end: 20180203
  11. VANCOMICINA [Concomitant]
     Active Substance: VANCOMYCIN
     Indication: PRODUCT USED FOR UNKNOWN INDICATION
     Dosage: 350 MG/6 HOUR
     Route: 042
     Dates: start: 20171211, end: 20171215
  12. ACICLOVIR [Concomitant]
     Active Substance: ACYCLOVIR
     Indication: PROPHYLAXIS
     Dosage: 300 MG/8 HOUR
     Route: 048
     Dates: start: 20171211, end: 20180103
  13. ACICLOVIR [Concomitant]
     Active Substance: ACYCLOVIR
     Dosage: 280 MG/8HOUR
     Route: 048
     Dates: start: 20180205, end: 20180222
  14. MEROPENEM. [Concomitant]
     Active Substance: MEROPENEM
     Indication: PRODUCT USED FOR UNKNOWN INDICATION
     Dosage: 1400 MG/8 HOUR
     Route: 042
     Dates: start: 20171211, end: 20171212
  15. FUROSEMIDE. [Concomitant]
     Active Substance: FUROSEMIDE
     Indication: PRODUCT USED FOR UNKNOWN INDICATION
     Dosage: 2 MG/6HOUR
     Route: 042
     Dates: start: 20180205, end: 20180213
  16. ETOPOSIDO [Suspect]
     Active Substance: ETOPOSIDE
     Indication: ACUTE LYMPHOCYTIC LEUKAEMIA
     Dosage: 50 MG/12HOUR
     Route: 048
     Dates: start: 20180131, end: 20180202
  17. VANCOMICINA [Concomitant]
     Active Substance: VANCOMYCIN
     Dosage: 400 MG/6 HOUR
     Route: 042
     Dates: start: 20180205, end: 20180207
  18. HYDROCORTISONE. [Concomitant]
     Active Substance: HYDROCORTISONE
     Indication: PROPHYLAXIS
     Dosage: 4 MG/8 HOUR
     Route: 048
     Dates: start: 20180205, end: 20180223
  19. ERWINASE [Suspect]
     Active Substance: ASPARAGINASE ERWINIA CHRYSANTHEMI
     Indication: ACUTE LYMPHOCYTIC LEUKAEMIA
     Dosage: 22.4 IU/KG/7 DAYS
     Route: 030
     Dates: start: 20171129, end: 20171226
  20. COLECALCIFEROL [Concomitant]
     Active Substance: CHOLECALCIFEROL
     Indication: PRODUCT USED FOR UNKNOWN INDICATION
     Dosage: 1200 IU/24 HOURS
     Route: 048
     Dates: start: 20171215, end: 20180129
  21. PIPERACILINA + TAZOBACTAM [Concomitant]
     Active Substance: PIPERACILLIN SODIUM\TAZOBACTAM SODIUM
     Indication: PRODUCT USED FOR UNKNOWN INDICATION
     Dosage: 3000 MG/6HOUR
     Route: 042
     Dates: start: 20180207, end: 20180218
  22. OMEPRAZOLE. [Concomitant]
     Active Substance: OMEPRAZOLE
     Indication: PROPHYLAXIS
     Dosage: 20 MG/1DAY
     Route: 042
     Dates: start: 20180205, end: 20180214
  23. CITARABINA [Suspect]
     Active Substance: CYTARABINE
     Indication: ACUTE LYMPHOCYTIC LEUKAEMIA
     Dosage: UNK
     Route: 042
     Dates: start: 20180129, end: 20180130
  24. LEVOFLOXACINO [Concomitant]
     Active Substance: LEVOFLOXACIN
     Indication: PRODUCT USED FOR UNKNOWN INDICATION
     Dosage: 370 MG/24 HOURS
     Route: 042
     Dates: start: 20171212, end: 20171219
  25. SEPTRIN [Concomitant]
     Active Substance: SULFAMETHOXAZOLE\TRIMETHOPRIM
     Indication: PROPHYLAXIS
     Dosage: 1 DF/12 HOUR
     Route: 048
     Dates: start: 20171211, end: 20180129

REACTIONS (2)
  - Septic shock [Recovered/Resolved]
  - Renal tubular dysfunction [Recovered/Resolved]

NARRATIVE: CASE EVENT DATE: 20171226
